FAERS Safety Report 7906311-7 (Version None)
Quarter: 2011Q4

REPORT INFORMATION
  Report Type: 
  Country: None (occurrence: None)
  Receive Date: 20111110
  Receipt Date: 20111103
  Transmission Date: 20120403
  Serious: Yes (Hospitalization, Other)
  Sender: FDA-Public Use
  Company Number: US-UCBSA-044821

PATIENT
  Age: 50 Year
  Sex: Male

DRUGS (2)
  1. VIMPAT [Suspect]
     Dates: start: 20110101, end: 20110101
  2. LAMICTAL [Concomitant]
     Dates: start: 20110101

REACTIONS (3)
  - RASH MACULO-PAPULAR [None]
  - DRUG HYPERSENSITIVITY [None]
  - CONJUNCTIVAL HYPERAEMIA [None]
